FAERS Safety Report 6441257-5 (Version None)
Quarter: 2009Q4

REPORT INFORMATION
  Report Type: 
  Country: None (occurrence: None)
  Receive Date: 20091116
  Receipt Date: 20091104
  Transmission Date: 20100525
  Serious: Yes (Disabling, Other)
  Sender: FDA-Public Use
  Company Number: US-ELI_LILLY_AND_COMPANY-US200911001152

PATIENT
  Sex: Female

DRUGS (10)
  1. EVISTA [Suspect]
     Dosage: UNK, UNKNOWN
     Route: 065
  2. AMITRIPTYLINE HCL [Concomitant]
     Dosage: UNK, UNKNOWN
     Route: 065
  3. ASPIRIN [Concomitant]
     Dosage: UNK, UNKNOWN
     Route: 065
  4. COZAAR [Concomitant]
     Dosage: UNK, UNKNOWN
     Route: 065
  5. FOSAMAX [Concomitant]
     Dosage: UNK, UNKNOWN
     Route: 065
  6. LOCOID [Concomitant]
     Dosage: UNK, UNKNOWN
     Route: 061
  7. NORVASC [Concomitant]
     Dosage: UNK, UNKNOWN
     Route: 065
  8. RILUTEK [Concomitant]
     Dosage: UNK, UNKNOWN
     Route: 065
  9. ATENOLOL [Concomitant]
     Dosage: UNK, UNKNOWN
     Route: 065
  10. XANAX [Concomitant]
     Dosage: UNK, UNKNOWN
     Route: 065

REACTIONS (1)
  - NERVOUS SYSTEM DISORDER [None]
